FAERS Safety Report 13719296 (Version 1)
Quarter: 2017Q3

REPORT INFORMATION
  Report Type: Spontaneous
  Country: US (occurrence: US)
  Receive Date: 20170705
  Receipt Date: 20170705
  Transmission Date: 20171127
  Serious: Yes (Other)
  Sender: FDA-Public Use
  Company Number: US-TEVA-783160USA

PATIENT
  Age: 31 Year
  Sex: Male

DRUGS (1)
  1. GRANIX [Suspect]
     Active Substance: TBO-FILGRASTIM
     Indication: HAEMATOPOIETIC STEM CELL MOBILISATION
     Route: 058

REACTIONS (3)
  - Glomerulonephritis rapidly progressive [Recovering/Resolving]
  - Transplant rejection [Not Recovered/Not Resolved]
  - Renal injury [Unknown]
